FAERS Safety Report 4704745-5 (Version None)
Quarter: 2005Q2

REPORT INFORMATION
  Report Type: 
  Country: None (occurrence: None)
  Receive Date: 20050630
  Receipt Date: 20050616
  Transmission Date: 20051028
  Serious: Yes (Hospitalization, Other)
  Sender: FDA-Public Use
  Company Number: 2005065616

PATIENT
  Sex: Male
  Weight: 117.9352 kg

DRUGS (2)
  1. DILANTIN [Suspect]
     Indication: CONVULSION
     Dosage: 500 MG (2 IN 1 D)
  2. PHENYTOIN [Suspect]
     Indication: CONVULSION
     Dosage: 900 MG (2 IN 1 D)

REACTIONS (10)
  - ABASIA [None]
  - ANTICONVULSANT DRUG LEVEL BELOW THERAPEUTIC [None]
  - ANTICONVULSANT DRUG LEVEL INCREASED [None]
  - BALANCE DISORDER [None]
  - DIZZINESS [None]
  - DRUG INEFFECTIVE [None]
  - MALAISE [None]
  - PHARMACEUTICAL PRODUCT COMPLAINT [None]
  - THERAPEUTIC AGENT TOXICITY [None]
  - VERTIGO [None]
